FAERS Safety Report 14957599 (Version 1)
Quarter: 2018Q2

REPORT INFORMATION
  Report Type: Spontaneous
  Country: US (occurrence: US)
  Receive Date: 20180531
  Receipt Date: 20180531
  Transmission Date: 20180711
  Serious: No
  Sender: FDA-Public Use
  Company Number: US-ARBOR PHARMACEUTICALS, LLC-US-2017ARB000517

PATIENT

DRUGS (2)
  1. HORIZANT [Suspect]
     Active Substance: GABAPENTIN ENACARBIL
     Indication: INSOMNIA
     Dosage: 1 DF, QD, EVERY NIGHT
     Route: 048
     Dates: start: 20170518
  2. CLONAZEPAM. [Concomitant]
     Active Substance: CLONAZEPAM
     Indication: ANXIETY
     Dosage: UNK

REACTIONS (3)
  - Feeling of relaxation [Unknown]
  - Product use in unapproved indication [Unknown]
  - Somnolence [Unknown]

NARRATIVE: CASE EVENT DATE: 20170518
